FAERS Safety Report 25247897 (Version 2)
Quarter: 2025Q3

REPORT INFORMATION
  Report Type: Spontaneous
  Country: US (occurrence: US)
  Receive Date: 20250429
  Receipt Date: 20250809
  Transmission Date: 20251020
  Serious: Yes (Other)
  Sender: ALEXION PHARMACEUTICALS
  Company Number: US-AstraZeneca-CH-00854450A

PATIENT
  Sex: Male

DRUGS (1)
  1. CALQUENCE [Suspect]
     Active Substance: ACALABRUTINIB
     Indication: Lymphoma
     Route: 065

REACTIONS (9)
  - Dizziness [Unknown]
  - Arthropathy [Unknown]
  - Pain [Unknown]
  - Body temperature [Unknown]
  - Chills [Unknown]
  - Lung neoplasm malignant [Unknown]
  - Lymphadenopathy [Unknown]
  - Leukaemia [Unknown]
  - Hyperhidrosis [Unknown]
